FAERS Safety Report 6774107-8 (Version None)
Quarter: 2010Q2

REPORT INFORMATION
  Report Type: 
  Country: None (occurrence: None)
  Receive Date: 20100616
  Receipt Date: 20100616
  Transmission Date: 20101027
  Serious: No
  Sender: FDA-Public Use
  Company Number: None

PATIENT
  Age: 72 Year
  Sex: Female
  Weight: 82.5547 kg

DRUGS (2)
  1. KEFLEX [Suspect]
     Indication: URINARY TRACT INFECTION
     Dosage: 500 MG ONCE A DAY PO
     Route: 048
     Dates: start: 20100507, end: 20100513
  2. KEFLEX [Suspect]
     Indication: URINARY TRACT INFECTION
     Dosage: 500 MG ONCE A DAY PO
     Route: 048
     Dates: start: 20100520, end: 20100607

REACTIONS (1)
  - STEVENS-JOHNSON SYNDROME [None]
